FAERS Safety Report 15206665 (Version 1)
Quarter: 2018Q3

REPORT INFORMATION
  Report Type: Spontaneous
  Country: US (occurrence: US)
  Receive Date: 20180628
  Receipt Date: 20180628
  Transmission Date: 20181010
  Serious: Yes (Hospitalization)
  Sender: FDA-Public Use
  Company Number: None

PATIENT
  Age: 14 Year
  Sex: Female
  Weight: 77 kg

DRUGS (7)
  1. DAUNORUBICIN [Suspect]
     Active Substance: DAUNORUBICIN
     Dates: end: 20180528
  2. GLEEVEC [Suspect]
     Active Substance: IMATINIB MESYLATE
     Dates: end: 20180605
  3. VINCRISTINE SULFATE. [Suspect]
     Active Substance: VINCRISTINE SULFATE
     Dates: end: 20180528
  4. METHOTREXATE. [Suspect]
     Active Substance: METHOTREXATE
     Dates: end: 20180514
  5. ONCASPAR [Suspect]
     Active Substance: PEGASPARGASE
     Dates: end: 20180510
  6. CYTARABINE. [Suspect]
     Active Substance: CYTARABINE
     Dates: end: 20180517
  7. PREDNISONE. [Suspect]
     Active Substance: PREDNISONE
     Dates: end: 20180603

REACTIONS (8)
  - Abdominal pain [None]
  - Haematuria [None]
  - Intestinal dilatation [None]
  - Large intestine perforation [None]
  - Constipation [None]
  - Tachycardia [None]
  - Tachypnoea [None]
  - Sepsis [None]

NARRATIVE: CASE EVENT DATE: 20180605
